FAERS Safety Report 6240316-X (Version None)
Quarter: 2009Q2

REPORT INFORMATION
  Report Type: 
  Country: None (occurrence: None)
  Receive Date: 20090623
  Receipt Date: 20080703
  Transmission Date: 20091009
  Serious: No
  Sender: FDA-Public Use
  Company Number: US-ASTRAZENECA-2008UW13461

PATIENT
  Age: 6 Month

DRUGS (2)
  1. PULMICORT RESPULES [Suspect]
     Dosage: 0.5 MG / 2 ML
     Route: 055
  2. UNSPECIFIED [Concomitant]

REACTIONS (2)
  - CRYING [None]
  - SCREAMING [None]
